FAERS Safety Report 22311376 (Version 4)
Quarter: 2023Q4

REPORT INFORMATION
  Report Type: Report from Study
  Country: CA (occurrence: CA)
  Receive Date: 20230511
  Receipt Date: 20231012
  Transmission Date: 20240110
  Serious: Yes (Other)
  Sender: FDA-Public Use
  Company Number: CA-AKCEA THERAPEUTICS, INC.-2023IS001208

PATIENT

DRUGS (7)
  1. TEGSEDI [Suspect]
     Active Substance: INOTERSEN SODIUM
     Indication: Hereditary neuropathic amyloidosis
     Dosage: 284 MILLIGRAM, QW
     Route: 058
  2. TEGSEDI [Suspect]
     Active Substance: INOTERSEN SODIUM
     Dosage: 284 MILLIGRAM, QW
     Route: 058
  3. TEGSEDI [Suspect]
     Active Substance: INOTERSEN SODIUM
     Dosage: 284 MILLIGRAM, QW
     Route: 058
  4. LASIX [Suspect]
     Active Substance: FUROSEMIDE
     Indication: Product used for unknown indication
     Dosage: 60 MILLIGRAM
     Route: 065
  5. LASIX [Suspect]
     Active Substance: FUROSEMIDE
     Dosage: 40 MILLIGRAM
     Route: 065
  6. ELIQUIS [Concomitant]
     Active Substance: APIXABAN
     Indication: Product used for unknown indication
     Route: 065
  7. ROSUVASTATIN [Concomitant]
     Active Substance: ROSUVASTATIN
     Indication: Product used for unknown indication
     Route: 058

REACTIONS (24)
  - Bilirubin conjugated increased [Not Recovered/Not Resolved]
  - Blood bilirubin increased [Not Recovered/Not Resolved]
  - Blood bilirubin unconjugated increased [Not Recovered/Not Resolved]
  - Blood creatinine increased [Not Recovered/Not Resolved]
  - Dementia [Not Recovered/Not Resolved]
  - Fear [Not Recovered/Not Resolved]
  - Glomerular filtration rate decreased [Not Recovered/Not Resolved]
  - Injection site pruritus [Not Recovered/Not Resolved]
  - Intentional product misuse [Not Recovered/Not Resolved]
  - Mobility decreased [Not Recovered/Not Resolved]
  - Platelet count decreased [Not Recovered/Not Resolved]
  - Protein urine present [Not Recovered/Not Resolved]
  - Rash [Not Recovered/Not Resolved]
  - Renal impairment [Not Recovered/Not Resolved]
  - Fatigue [Unknown]
  - Injection site mass [Unknown]
  - Pruritus [Unknown]
  - Depression [Not Recovered/Not Resolved]
  - Platelet morphology abnormal [Not Recovered/Not Resolved]
  - Somnolence [Not Recovered/Not Resolved]
  - Creatinine urine decreased [Not Recovered/Not Resolved]
  - Red cell distribution width increased [Unknown]
  - Urine protein/creatinine ratio increased [Unknown]
  - Haematocrit increased [Unknown]
